FAERS Safety Report 10461320 (Version 1)
Quarter: 2014Q3

REPORT INFORMATION
  Report Type: Spontaneous
  Country: IT (occurrence: None)
  Receive Date: 20140916
  Receipt Date: 20140916
  Transmission Date: 20150326
  Serious: Yes (Hospitalization)
  Sender: FDA-Public Use
  Company Number: IT-H14001-14-00576

PATIENT
  Age: 58 Year
  Sex: Female

DRUGS (1)
  1. AMOXICILLIN+CLAVULANIC ACID [Suspect]
     Active Substance: AMOXICILLIN\CLAVULANIC ACID
     Indication: THERAPEUTIC PROCEDURE
     Dosage: (UNKNOWN), UNKNOWN

REACTIONS (4)
  - Pyrexia [None]
  - Lymphadenopathy [None]
  - Hepatic function abnormal [None]
  - Drug reaction with eosinophilia and systemic symptoms [None]
